FAERS Safety Report 6369851-0 (Version None)
Quarter: 2009Q3

REPORT INFORMATION
  Report Type: 
  Country: None (occurrence: None)
  Receive Date: 20090923
  Receipt Date: 20070608
  Transmission Date: 20100115
  Serious: Yes (Other)
  Sender: FDA-Public Use
  Company Number: US-ASTRAZENECA-2006UW11563

PATIENT
  Age: 309 Month
  Sex: Male
  Weight: 174.6 kg

DRUGS (28)
  1. SEROQUEL [Suspect]
     Indication: SCHIZOPHRENIA
     Dosage: DAILY INCREASES UNTIL A DOSE OF 200 MG TWO TIMES A DAY IS REACHED
     Route: 048
     Dates: start: 20011017
  2. SEROQUEL [Suspect]
     Indication: DEPRESSION
     Dosage: DAILY INCREASES UNTIL A DOSE OF 200 MG TWO TIMES A DAY IS REACHED
     Route: 048
     Dates: start: 20011017
  3. SEROQUEL [Suspect]
     Route: 048
     Dates: start: 20010101
  4. SEROQUEL [Suspect]
     Route: 048
     Dates: start: 20010101
  5. ZYPREXA [Suspect]
  6. ABILIFY [Suspect]
     Dosage: 5-20MG
     Dates: start: 20030101, end: 20060101
  7. ABILIFY [Suspect]
     Dates: start: 20030205
  8. CLOZARIL [Suspect]
     Dosage: 50 MG IN THE MORNING AND 350 MG IN THE EVENING
     Dates: start: 20030416
  9. CLOZARIL [Suspect]
     Dosage: 50- 200MG
     Dates: start: 20030401, end: 20060101
  10. EFFEXOR [Concomitant]
  11. RISPERDAL [Concomitant]
     Dosage: 3 MG, 4 MG AT NIGHT
     Dates: start: 19991130
  12. RISPERDAL [Concomitant]
     Dates: start: 20000503, end: 20011026
  13. METFORMIN HCL [Concomitant]
     Dosage: 500 - 2000 MG
     Dates: start: 20031121
  14. GLIPIZIDE [Concomitant]
     Dates: start: 20050222
  15. ASPIRIN [Concomitant]
     Dates: start: 20050209
  16. ATENOLOL [Concomitant]
     Dates: start: 20031121
  17. FUROSEMIDE [Concomitant]
     Indication: OEDEMA PERIPHERAL
     Dates: start: 20060620
  18. GEMFIBROZIL [Concomitant]
     Indication: HYPERTRIGLYCERIDAEMIA
     Dates: start: 20060620
  19. LANTUS [Concomitant]
     Dosage: 8 UNITS AT NOON
     Dates: start: 20060620
  20. LORATADINE [Concomitant]
     Dates: start: 20060620
  21. FISH OIL [Concomitant]
     Dates: start: 20060620
  22. ACTOS [Concomitant]
     Dates: start: 20060620
  23. POTASSIUM CHLORIDE [Concomitant]
     Dates: start: 20060620
  24. EFFEXOR XR [Concomitant]
     Dates: start: 20020911
  25. BYETTA [Concomitant]
     Dosage: 5 MG SUBCU TWICE DAILY, 10 MCG SUBCU TWICE DAILY
     Dates: start: 20060620
  26. RANITIDINE [Concomitant]
     Indication: GASTROOESOPHAGEAL REFLUX DISEASE
     Dates: start: 20020911
  27. BENZTROPINE MES [Concomitant]
     Dates: start: 20020911
  28. CELEXA [Concomitant]
     Dates: start: 20011017

REACTIONS (2)
  - DIABETES MELLITUS [None]
  - DIABETES MELLITUS INADEQUATE CONTROL [None]
